FAERS Safety Report 7179811-8 (Version None)
Quarter: 2010Q4

REPORT INFORMATION
  Report Type: 
  Country: None (occurrence: None)
  Receive Date: 20101221
  Receipt Date: 20101214
  Transmission Date: 20110411
  Serious: Yes (Hospitalization)
  Sender: FDA-Public Use
  Company Number: FR-BRISTOL-MYERS SQUIBB COMPANY-15444755

PATIENT
  Age: 79 Year
  Sex: Female

DRUGS (8)
  1. AXEPIM [Suspect]
     Indication: ACINETOBACTER INFECTION
     Dates: start: 20101207
  2. ENALAPRIL MALEATE [Concomitant]
     Dates: end: 20101212
  3. NEXIUM [Concomitant]
     Dates: end: 20101212
  4. ESIDRIX [Concomitant]
     Dates: end: 20101212
  5. AVLOCARDYL [Concomitant]
     Dates: end: 20101212
  6. CALCIPARINE [Concomitant]
  7. DEXERYL [Concomitant]
  8. GLUCOSE [Concomitant]
     Indication: DEHYDRATION

REACTIONS (1)
  - STATUS EPILEPTICUS [None]
